FAERS Safety Report 5921834-8 (Version None)
Quarter: 2008Q4

REPORT INFORMATION
  Report Type: 
  Country: None (occurrence: None)
  Receive Date: 20081016
  Receipt Date: 20081016
  Transmission Date: 20090506
  Serious: No
  Sender: FDA-Public Use
  Company Number: None

PATIENT
  Age: 51 Year
  Sex: Female

DRUGS (1)
  1. DOXEPIN HCL [Suspect]

REACTIONS (4)
  - FIBROSIS [None]
  - PRURITUS [None]
  - SWELLING FACE [None]
  - URTICARIA [None]
